FAERS Safety Report 9879660 (Version 1)
Quarter: 2014Q1

REPORT INFORMATION
  Report Type: Spontaneous
  Country: US (occurrence: US)
  Receive Date: 20140206
  Receipt Date: 20140206
  Transmission Date: 20141002
  Serious: Yes (Other)
  Sender: FDA-Public Use
  Company Number: US-PFIZER INC-2014030648

PATIENT
  Age: 40 Year
  Sex: Female
  Weight: 65.76 kg

DRUGS (2)
  1. XELJANZ [Suspect]
     Indication: RHEUMATOID ARTHRITIS
     Dosage: 5 MG, 2X/DAY
     Dates: start: 20140126, end: 20140129
  2. ZOLOFT [Concomitant]
     Indication: ANXIETY
     Dosage: 25 MG, 1X/DAY

REACTIONS (9)
  - Dyspnoea [Recovering/Resolving]
  - Diplopia [Recovering/Resolving]
  - Dizziness [Recovering/Resolving]
  - Confusional state [Recovering/Resolving]
  - Lip swelling [Recovering/Resolving]
  - Heart rate increased [Recovering/Resolving]
  - Swelling face [Recovering/Resolving]
  - Eye swelling [Recovering/Resolving]
  - Headache [Recovering/Resolving]
